FAERS Safety Report 7837792 (Version 2)
Quarter: 2012Q4

REPORT INFORMATION
  Report Type: 
  Country: US (occurrence: US)
  Receive Date: 20110302
  Receipt Date: 20120913
  Transmission Date: 20130627
  Serious: Yes (Hospitalization, Other)
  Sender: FDA-Public Use
  Company Number: US-PFIZER INC-2010057682

PATIENT
  Age: 8 Year
  Sex: Female

DRUGS (2)
  1. DILANTIN [Suspect]
     Indication: GRAND MAL CONVULSION
     Dosage: 100 mg, UNK
     Route: 048
     Dates: start: 20010904
  2. DILANTIN KAPSEAL [Suspect]
     Indication: GRAND MAL CONVULSION
     Dosage: 130 mg, 2x/day
     Route: 048
     Dates: start: 20010905, end: 20010918

REACTIONS (1)
  - Stevens-Johnson syndrome [Recovering/Resolving]
